FAERS Safety Report 18311330 (Version 1)
Quarter: 2020Q3

REPORT INFORMATION
  Report Type: Spontaneous
  Country: US (occurrence: US)
  Receive Date: 20200924
  Receipt Date: 20200924
  Transmission Date: 20201103
  Serious: Yes (Life-Threatening, Hospitalization, Other)
  Sender: FDA-Public Use
  Company Number: None

PATIENT
  Age: 73 Year
  Sex: Male

DRUGS (1)
  1. HEPARIN (HEPARIN NA (PORK) 40000UNT/ML INJ) [Suspect]
     Active Substance: HEPARIN SODIUM
     Indication: ATRIAL FIBRILLATION
     Dosage: ?          OTHER DOSE:1 UNITS;OTHER FREQUENCY:SLIDING SCALE;?
     Route: 042
     Dates: start: 20190225, end: 20190305

REACTIONS (3)
  - Activated partial thromboplastin time shortened [None]
  - Cerebrovascular accident [None]
  - Peripheral ischaemia [None]

NARRATIVE: CASE EVENT DATE: 20190307
